FAERS Safety Report 5076263-9 (Version None)
Quarter: 2006Q3

REPORT INFORMATION
  Report Type: 
  Country: None (occurrence: None)
  Receive Date: 20060804
  Receipt Date: 20060725
  Transmission Date: 20061208
  Serious: Yes (Other)
  Sender: FDA-Public Use
  Company Number: B0432756A

PATIENT
  Age: 45 Year
  Sex: Male

DRUGS (5)
  1. COMBIVIR [Suspect]
     Indication: HIV TEST POSITIVE
     Dosage: 450 MG /TWICE PER DAY/ ORAL
     Route: 048
  2. EFAVIRENZ [Suspect]
     Indication: HIV TEST POSITIVE
     Dosage: 800 MG/ AT NIGHT /ORAL
     Route: 048
  3. ABACAVIR SULFATE [Concomitant]
  4. LAMIVUDINE [Concomitant]
  5. NEVIRAPINE [Concomitant]

REACTIONS (2)
  - CARDIOMYOPATHY [None]
  - HALLUCINATION [None]
